FAERS Safety Report 15762655 (Version 2)
Quarter: 2019Q1

REPORT INFORMATION
  Report Type: Spontaneous
  Country: GB (occurrence: GB)
  Receive Date: 20181226
  Receipt Date: 20190108
  Transmission Date: 20190417
  Serious: Yes (Other)
  Sender: FDA-Public Use
  Company Number: GB-PFIZER INC-804043

PATIENT
  Age: 57 Year
  Sex: Female
  Weight: 84 kg

DRUGS (6)
  1. OXALIPLATIN. [Suspect]
     Active Substance: OXALIPLATIN
     Dosage: 97.5 MG/M2, RESTARTED FOLLOWING EVENT RECOVERY, FREQ: 21 DAY;INTERVAL:1
     Route: 042
     Dates: start: 20110107
  2. CAPECITABINE. [Suspect]
     Active Substance: CAPECITABINE
     Dosage: 750 MG/M2, ONCE EVERY 2 WEEKS
     Route: 048
     Dates: start: 20110107
  3. CAPECITABINE. [Suspect]
     Active Substance: CAPECITABINE
     Indication: COLORECTAL CANCER
     Dosage: 1000 MG/M2, ONCE EVERY 2 WEEKS
     Route: 048
     Dates: end: 20101224
  4. OXALIPLATIN. [Suspect]
     Active Substance: OXALIPLATIN
     Dosage: 97.5 MG/M2, FREQ: 21DAYS; INTERVAL: 1
     Route: 042
     Dates: end: 20101210
  5. ERBITUX [Suspect]
     Active Substance: CETUXIMAB
     Dosage: 250 MG/M2, RESTARTED FOLLOWING EVENT RECOVERY, FREQ:1WEEK; INTERVAL:1
     Route: 042
     Dates: start: 20110107
  6. ERBITUX [Suspect]
     Active Substance: CETUXIMAB
     Indication: COLORECTAL CANCER
     Dosage: 250 MG/M2, FREQ: 1WEEK;INTERVAL:1
     Route: 042
     Dates: start: 20101008, end: 20101224

REACTIONS (2)
  - Platelet count decreased [Unknown]
  - Palmar-plantar erythrodysaesthesia syndrome [Recovered/Resolved]

NARRATIVE: CASE EVENT DATE: 20101230
